FAERS Safety Report 5564258-8 (Version None)
Quarter: 2007Q4

REPORT INFORMATION
  Report Type: 
  Country: None (occurrence: None)
  Receive Date: 20071212
  Receipt Date: 20071205
  Transmission Date: 20080405
  Serious: Yes (Hospitalization)
  Sender: FDA-Public Use
  Company Number: 6039647

PATIENT
  Age: 62 Year
  Sex: Male

DRUGS (1)
  1. CONCOR(BISOPROLOL FUMARATE) [Suspect]
     Indication: HYPERTENSION
     Dosage: 5 MG (5 MG,1 IN 1 D)
     Route: 048
     Dates: start: 20071001

REACTIONS (2)
  - FALL [None]
  - QUADRIPLEGIA [None]
